FAERS Safety Report 21801851 (Version 2)
Quarter: 2023Q1

REPORT INFORMATION
  Report Type: Spontaneous
  Country: CH (occurrence: CH)
  Receive Date: 20221230
  Receipt Date: 20230111
  Transmission Date: 20230417
  Serious: Yes (Other)
  Sender: FDA-Public Use
  Company Number: CH-SM-2022-22642

PATIENT
  Age: 69 Year
  Sex: Male

DRUGS (17)
  1. VEKLURY [Suspect]
     Active Substance: REMDESIVIR
     Indication: COVID-19
     Dosage: 200 MG ON DAY 1, AND THEN 100 MG/D
     Route: 042
     Dates: start: 20221212, end: 20221213
  2. PLAVIX [Concomitant]
     Active Substance: CLOPIDOGREL BISULFATE
     Dosage: 75 MG
     Route: 048
  3. OLMESARTAN SANDOZ [Concomitant]
     Dosage: 20 MG
     Route: 048
  4. TORSEMIDE [Concomitant]
     Active Substance: TORSEMIDE
     Dosage: (20)
     Route: 048
     Dates: end: 202212
  5. TORSEMIDE [Concomitant]
     Active Substance: TORSEMIDE
     Dosage: 10 MG
     Route: 048
  6. ATORVASTATIN CALCIUM\EZETIMIBE [Concomitant]
     Active Substance: ATORVASTATIN CALCIUM\EZETIMIBE
     Route: 048
  7. BENSERAZIDE HYDROCHLORIDE\LEVODOPA [Concomitant]
     Active Substance: BENSERAZIDE HYDROCHLORIDE\LEVODOPA
     Dosage: MADOPAR? LIQ TABL 125 MG (LEVODOPA, BENSERAZID) 1X/TAG (07.00 UHR)
     Route: 048
  8. BENSERAZIDE HYDROCHLORIDE\LEVODOPA [Concomitant]
     Active Substance: BENSERAZIDE HYDROCHLORIDE\LEVODOPA
     Dosage: MADOPAR? TABL 125 MG (LEVODOPA, BENSERAZID) 7X/TAG (07.30 / 09.30 / 11.30 / 13.30 / 15.30 / 17.30...
     Route: 048
  9. BENSERAZIDE HYDROCHLORIDE\LEVODOPA [Concomitant]
     Active Substance: BENSERAZIDE HYDROCHLORIDE\LEVODOPA
     Dosage: MADOPAR? DR TABL 250 MG (LEVODOPA, BENSERAZID) 1X/TAG (22.00H)
     Route: 048
  10. REQUIP [Concomitant]
     Active Substance: ROPINIROLE HYDROCHLORIDE
     Dosage: REQUIP? MODUTAB FILMTABL 8 MG (ROPINIROL) 1X/TAG (07.30H)
     Route: 048
  11. REQUIP [Concomitant]
     Active Substance: ROPINIROLE HYDROCHLORIDE
     Dosage: REQUIP? MODUTAB FILMTABL 4 MG (ROPINIROL) 1X/TAG (17.30H)
     Route: 048
  12. XADAGO [Concomitant]
     Active Substance: SAFINAMIDE MESYLATE
     Dosage: 100 MG
     Route: 048
  13. SODIUM PICOSULFATE [Concomitant]
     Active Substance: SODIUM PICOSULFATE
     Dosage: 5 GTT DROPS: 7.5 MG
     Route: 048
  14. POLYETHYLENE GLYCOL 3350\POTASSIUM CHLORIDE\SODIUM BICARBONATE\SODIUM [Concomitant]
     Active Substance: POLYETHYLENE GLYCOL 3350\POTASSIUM CHLORIDE\SODIUM BICARBONATE\SODIUM CHLORIDE
     Dosage: 1 DOSAGE FORM
     Route: 048
  15. MAGNESIUM ASPARTATE HYDROCHLORIDE [Concomitant]
     Active Substance: MAGNESIUM ASPARTATE HYDROCHLORIDE
     Dosage: 5 MMOL
     Route: 048
  16. CHOLECALCIFEROL [Concomitant]
     Active Substance: CHOLECALCIFEROL
     Dosage: 2 ML
     Route: 048
  17. HYALURONATE SODIUM [Concomitant]
     Active Substance: HYALURONATE SODIUM
     Dosage: 1 DOSAGE FORM
     Route: 047

REACTIONS (3)
  - Atrial fibrillation [Recovering/Resolving]
  - Bradycardia [Recovering/Resolving]
  - Sinus arrest [Recovering/Resolving]

NARRATIVE: CASE EVENT DATE: 20221212
